FAERS Safety Report 8258243-5 (Version None)
Quarter: 2012Q2

REPORT INFORMATION
  Report Type: 
  Country: None (occurrence: None)
  Receive Date: 20120404
  Receipt Date: 20120402
  Transmission Date: 20120825
  Serious: Yes (Death, Other)
  Sender: FDA-Public Use
  Company Number: PHHY2012NZ028243

PATIENT
  Sex: Female

DRUGS (2)
  1. CLOZARIL [Suspect]
     Dosage: 600 MG/ DAY
     Dates: start: 19961025
  2. CLOZARIL [Suspect]
     Dosage: APPROXIMATELY 550MG/DAY

REACTIONS (3)
  - DEATH [None]
  - FALL [None]
  - ORTHOSTATIC HYPOTENSION [None]
